FAERS Safety Report 6477612-7 (Version None)
Quarter: 2009Q4

REPORT INFORMATION
  Report Type: 
  Country: None (occurrence: None)
  Receive Date: 20091203
  Receipt Date: 20091203
  Transmission Date: 20100525
  Serious: No
  Sender: FDA-Public Use
  Company Number: None

PATIENT
  Age: 25 Year
  Sex: Female
  Weight: 58.9676 kg

DRUGS (8)
  1. LUVOX [Suspect]
     Indication: OBSESSIVE-COMPULSIVE DISORDER
     Dosage: 200 MG. DAILY PO
     Route: 048
     Dates: start: 20090726, end: 20091202
  2. PROZAC [Suspect]
     Indication: DEPRESSION
     Dosage: 20 MG. DAILY PO LESS THAN ONE MONTH
     Route: 048
     Dates: start: 20080722, end: 20080801
  3. LUVOX [Concomitant]
  4. RISPERDAL [Concomitant]
  5. PROZAC [Concomitant]
  6. SEROQUEL [Concomitant]
  7. ABILIFY [Concomitant]
  8. ZYPREXA [Concomitant]

REACTIONS (3)
  - ABNORMAL DREAMS [None]
  - OBSESSIVE THOUGHTS [None]
  - SELF-INJURIOUS IDEATION [None]
